FAERS Safety Report 6358176-5 (Version None)
Quarter: 2009Q3

REPORT INFORMATION
  Report Type: 
  Country: None (occurrence: None)
  Receive Date: 20090916
  Receipt Date: 20090908
  Transmission Date: 20100115
  Serious: Yes (Hospitalization)
  Sender: FDA-Public Use
  Company Number: US-ELI_LILLY_AND_COMPANY-US200909001717

PATIENT
  Sex: Female
  Weight: 100.23 kg

DRUGS (11)
  1. BYETTA [Suspect]
     Indication: TYPE 2 DIABETES MELLITUS
     Dosage: 5 UG, 2/D
     Route: 058
     Dates: start: 20070101, end: 20090601
  2. METFORMIN HCL [Concomitant]
     Dosage: 200 MG, DAILY (1/D)
  3. GLYBURIDE [Concomitant]
     Dosage: 5 MG, DAILY (1/D)
  4. TRIAMTERENE AND HYDROCHLOROTHIAZIDE [Concomitant]
  5. LISINOPRIL [Concomitant]
     Dosage: 40 MG, DAILY (1/D)
  6. ATENOLOL [Concomitant]
     Dosage: 50 MG, DAILY (1/D)
  7. LIPITOR [Concomitant]
     Dosage: 80 MG, DAILY (1/D)
  8. ZETIA [Concomitant]
     Dosage: 10 MG, DAILY (1/D)
  9. PLAVIX [Concomitant]
     Dosage: 75 MG, DAILY (1/D)
  10. FOSAMAX [Concomitant]
     Dosage: 70 MG, WEEKLY (1/W)
  11. XALATAN [Concomitant]

REACTIONS (6)
  - ABDOMINAL PAIN UPPER [None]
  - BLOOD AMYLASE INCREASED [None]
  - CHEST PAIN [None]
  - LIPASE INCREASED [None]
  - NAUSEA [None]
  - VOMITING [None]
